FAERS Safety Report 8407661-0 (Version None)
Quarter: 2012Q2

REPORT INFORMATION
  Report Type: 
  Country: None (occurrence: None)
  Receive Date: 20120323
  Receipt Date: 20110513
  Transmission Date: 20120825
  Serious: Yes (Hospitalization)
  Sender: FDA-Public Use
  Company Number: 163-21880-11042553

PATIENT
  Age: 81 Year
  Sex: Female
  Weight: 50.3493 kg

DRUGS (10)
  1. MULTIVITAMIN [Concomitant]
  2. ADVAIR HFA [Concomitant]
  3. TRANSFUSION (BLOOD AND RELATED PRODUCTS) [Concomitant]
  4. REVLIMID [Suspect]
     Indication: MYELODYSPLASTIC SYNDROME
     Dosage: 10 MG, DAILY FOR 21 DAYS WITH 7 DAYS OFF,PO ; 10 MG, DAILY FOR 21 DAYS WITH 7 DAYS OFF, PO
     Route: 048
     Dates: start: 20100908
  5. REVLIMID [Suspect]
     Indication: MYELODYSPLASTIC SYNDROME
     Dosage: 10 MG, DAILY FOR 21 DAYS WITH 7 DAYS OFF,PO ; 10 MG, DAILY FOR 21 DAYS WITH 7 DAYS OFF, PO
     Route: 048
     Dates: start: 20100701
  6. ASPIRIN [Concomitant]
  7. ASTELIN [Concomitant]
  8. ANTIBIOTICS (ANTIBIOTICS) [Concomitant]
  9. IBUPROFEN (ADVIL) [Concomitant]
  10. CALCIUM CARBONATE [Concomitant]

REACTIONS (3)
  - SKIN EXFOLIATION [None]
  - DEEP VEIN THROMBOSIS [None]
  - DRY SKIN [None]
